FAERS Safety Report 10334151 (Version 1)
Quarter: 2014Q3

REPORT INFORMATION
  Report Type: Spontaneous
  Country: US (occurrence: None)
  Receive Date: 20140721
  Receipt Date: 20140721
  Transmission Date: 20150326
  Serious: Yes (Life-Threatening, Hospitalization, Other)
  Sender: FDA-Public Use
  Company Number: None

PATIENT
  Age: 62 Year
  Sex: Male
  Weight: 90.72 kg

DRUGS (1)
  1. LEVOFLOXACIN 500 MG [Suspect]
     Active Substance: LEVOFLOXACIN
     Indication: EPIDIDYMITIS
     Dosage: TAKEN BY MOUTH; 1 DAILY
     Route: 048
     Dates: start: 20140716, end: 20140717

REACTIONS (8)
  - Muscle twitching [None]
  - Abnormal dreams [None]
  - Pain in extremity [None]
  - Swelling [None]
  - Restlessness [None]
  - Suicidal ideation [None]
  - Tendon disorder [None]
  - Joint crepitation [None]

NARRATIVE: CASE EVENT DATE: 20140717
